FAERS Safety Report 19434500 (Version 1)
Quarter: 2021Q2

REPORT INFORMATION
  Report Type: Spontaneous
  Country: US (occurrence: US)
  Receive Date: 20210617
  Receipt Date: 20210617
  Transmission Date: 20210717
  Serious: No
  Sender: FDA-Public Use
  Company Number: US-ROCHE-2651946

PATIENT
  Sex: Female

DRUGS (9)
  1. LEVOTHYROXINE. [Concomitant]
     Active Substance: LEVOTHYROXINE
  2. ATORVASTATIN [Concomitant]
     Active Substance: ATORVASTATIN
  3. METOPROLOL. [Concomitant]
     Active Substance: METOPROLOL
  4. NASONEX [Concomitant]
     Active Substance: MOMETASONE FUROATE
     Dosage: 50MCG/AC
  5. METHOTREXATE. [Concomitant]
     Active Substance: METHOTREXATE
  6. FOLIC ACID. [Concomitant]
     Active Substance: FOLIC ACID
  7. PREDNISONE. [Concomitant]
     Active Substance: PREDNISONE
  8. ACTEMRA [Suspect]
     Active Substance: TOCILIZUMAB
     Indication: RHEUMATOID ARTHRITIS
     Route: 058
  9. ALENDRONATE [Concomitant]
     Active Substance: ALENDRONATE SODIUM

REACTIONS (3)
  - Erythema [Recovered/Resolved]
  - Pruritus [Recovered/Resolved]
  - Pain [Recovered/Resolved]
